FAERS Safety Report 18224278 (Version 1)
Quarter: 2020Q3

REPORT INFORMATION
  Report Type: Spontaneous
  Country: FR (occurrence: FR)
  Receive Date: 20200902
  Receipt Date: 20200902
  Transmission Date: 20201103
  Serious: Yes (Other)
  Sender: FDA-Public Use
  Company Number: FR-FRESENIUS KABI-FK202008959

PATIENT
  Age: 87 Year
  Sex: Female

DRUGS (4)
  1. ACYCLOVIR SODIUM (MANUFACTURER UNKNOWN) [Suspect]
     Active Substance: ACYCLOVIR SODIUM
     Indication: MENINGOENCEPHALITIS VIRAL
  2. ACYCLOVIR SODIUM (MANUFACTURER UNKNOWN) [Suspect]
     Active Substance: ACYCLOVIR SODIUM
     Indication: VARICELLA ZOSTER VIRUS INFECTION
     Dosage: INFUSED FOR 3 HOURS
     Route: 042
  3. AMOXICILLIN (MANUFACTURER UNKNOWN) [Suspect]
     Active Substance: AMOXICILLIN
     Indication: MENINGOENCEPHALITIS VIRAL
  4. AMOXICILLIN (MANUFACTURER UNKNOWN) [Suspect]
     Active Substance: AMOXICILLIN
     Indication: VARICELLA ZOSTER VIRUS INFECTION
     Dosage: HIGH DOSE
     Route: 065

REACTIONS (3)
  - Acute kidney injury [Recovered/Resolved]
  - Renal tubular necrosis [Recovered/Resolved]
  - Encephalopathy [Recovered/Resolved]
